FAERS Safety Report 5302033-X (Version None)
Quarter: 2007Q2

REPORT INFORMATION
  Report Type: 
  Country: None (occurrence: None)
  Receive Date: 20070419
  Receipt Date: 20070412
  Transmission Date: 20071010
  Serious: Yes (Other)
  Sender: FDA-Public Use
  Company Number: US-JNJFOC-20070402677

PATIENT
  Sex: Female
  Weight: 50.8 kg

DRUGS (4)
  1. CONCERTA [Suspect]
     Indication: DRUG USE FOR UNKNOWN INDICATION
     Route: 048
  2. STRATTERA [Concomitant]
  3. CLONIDINE [Concomitant]
  4. ANTIBIOTIC (NOS) [Concomitant]
     Indication: URINARY TRACT INFECTION

REACTIONS (3)
  - CYANOSIS [None]
  - FATIGUE [None]
  - HEADACHE [None]
